FAERS Safety Report 5131269-6 (Version None)
Quarter: 2006Q4

REPORT INFORMATION
  Report Type: 
  Country: None (occurrence: None)
  Receive Date: 20061016
  Receipt Date: 20060912
  Transmission Date: 20070319
  Serious: Yes (Hospitalization, Other)
  Sender: FDA-Public Use
  Company Number: 2005073704

PATIENT
  Age: 57 Year
  Sex: Male
  Weight: 88.4514 kg

DRUGS (9)
  1. BEXTRA [Suspect]
     Indication: ARTHRITIS
     Dosage: 20 MG (20 MG, 1 IN 1 D), ORAL
     Route: 048
     Dates: start: 20020401, end: 20040601
  2. BEXTRA [Suspect]
     Indication: GOUT
     Dosage: 20 MG (20 MG, 1 IN 1 D), ORAL
     Route: 048
     Dates: start: 20020401, end: 20040601
  3. BEXTRA [Suspect]
     Indication: PAIN
     Dosage: 20 MG (20 MG, 1 IN 1 D), ORAL
     Route: 048
     Dates: start: 20020401, end: 20040601
  4. VIOXX [Suspect]
  5. COLCHICUM JTL LIQ [Concomitant]
  6. ZOCOR [Concomitant]
  7. NIASPAN [Concomitant]
  8. PRILOSEC [Concomitant]
  9. ZETIA [Concomitant]

REACTIONS (7)
  - CARDIAC DISORDER [None]
  - CARDIOGENIC SHOCK [None]
  - CHEST PAIN [None]
  - CORONARY ARTERIAL STENT INSERTION [None]
  - CORONARY ARTERY STENOSIS [None]
  - MYOCARDIAL INFARCTION [None]
  - PNEUMONIA [None]
